FAERS Safety Report 7394666-4 (Version None)
Quarter: 2011Q1

REPORT INFORMATION
  Report Type: 
  Country: None (occurrence: None)
  Receive Date: 20110331
  Receipt Date: 20110331
  Transmission Date: 20110831
  Serious: No
  Sender: FDA-Public Use
  Company Number: None

PATIENT
  Age: 58 Year
  Sex: Male
  Weight: 112.4921 kg

DRUGS (1)
  1. OXYCONTIN [Suspect]
     Dosage: 20 MG HS PO
     Route: 048
     Dates: start: 20110131, end: 20110329

REACTIONS (3)
  - PRODUCT FORMULATION ISSUE [None]
  - DRUG INEFFECTIVE [None]
  - PRODUCT COATING ISSUE [None]
